FAERS Safety Report 19169957 (Version 1)
Quarter: 2021Q2

REPORT INFORMATION
  Report Type: Spontaneous
  Country: DK (occurrence: DK)
  Receive Date: 20210422
  Receipt Date: 20210422
  Transmission Date: 20210717
  Serious: Yes (Hospitalization, Disabling)
  Sender: FDA-Public Use
  Company Number: DK-PFIZER INC-2021389649

PATIENT
  Age: 70 Year
  Sex: Female
  Weight: 74 kg

DRUGS (5)
  1. MAGNESIA MEDIC [Concomitant]
     Indication: CONSTIPATION
     Dosage: 1000 MG, DAILY
     Route: 048
     Dates: start: 20170816
  2. ZESSLY [Suspect]
     Active Substance: INFLIXIMAB
     Indication: CROHN^S DISEASE
     Dosage: 450 MG (EVERY 10 WEEKS)
     Route: 042
     Dates: start: 20200529
  3. CALCIUM + VIT D [Concomitant]
     Active Substance: CALCIUM\VITAMIN D
     Indication: MINERAL SUPPLEMENTATION
     Dosage: 2 DF, DAILY
     Route: 048
     Dates: start: 20170823
  4. PREVNAR 13 [Concomitant]
     Active Substance: PNEUMOCOCCAL 13-VALENT CONJUGATE VACCINE
     Indication: IMMUNISATION
     Dosage: UNK
     Route: 030
  5. COMIRNATY [Suspect]
     Active Substance: TOZINAMERAN
     Indication: COVID-19 IMMUNISATION
     Dosage: SINGLE DOSE
     Dates: start: 20210228, end: 20210228

REACTIONS (2)
  - Cerebrovascular accident [Recovered/Resolved with Sequelae]
  - Diplopia [Not Recovered/Not Resolved]

NARRATIVE: CASE EVENT DATE: 20210228
